FAERS Safety Report 22168902 (Version 1)
Quarter: 2023Q2

REPORT INFORMATION
  Report Type: Spontaneous
  Country: US (occurrence: US)
  Receive Date: 20230403
  Receipt Date: 20230403
  Transmission Date: 20230722
  Serious: No
  Sender: FDA-Public Use
  Company Number: US-PURDUE PHARMA-USA-2023-0300220

PATIENT
  Sex: Male

DRUGS (1)
  1. BUPRENORPHINE [Suspect]
     Active Substance: BUPRENORPHINE
     Indication: Product used for unknown indication
     Dosage: 2 MILLIGRAM, UNK
     Route: 060

REACTIONS (5)
  - Tooth erosion [Unknown]
  - Dental caries [Unknown]
  - Tooth disorder [Unknown]
  - Bone erosion [Unknown]
  - Jaw operation [Unknown]
